FAERS Safety Report 8096430-X (Version None)
Quarter: 2012Q1

REPORT INFORMATION
  Report Type: 
  Country: None (occurrence: None)
  Receive Date: 20120129
  Receipt Date: 20111229
  Transmission Date: 20120608
  Serious: No
  Sender: FDA-Public Use
  Company Number: US-ABBOTT-11P-163-0883018-00

PATIENT
  Age: 41 Year
  Sex: Female

DRUGS (8)
  1. PREDNISONE TAB [Suspect]
     Indication: PRODUCT USED FOR UNKNOWN INDICATION
     Dosage: 30 MG PER DAY
  2. VITAMIN D [Concomitant]
     Indication: VITAMIN D DECREASED
  3. HYDROXYCHLOROQUINE SULFATE [Concomitant]
     Indication: PRODUCT USED FOR UNKNOWN INDICATION
     Dosage: ONE PILL PER DAY
  4. HYDROXYCHLOROQUINE SULFATE [Concomitant]
     Dosage: TWO PILLS PER DAY
  5. PREDNISONE TAB [Suspect]
     Dosage: PREDNISONE TAPER
  6. HIGH CHOLESTEROL MEDICATION [Concomitant]
     Indication: BLOOD CHOLESTEROL INCREASED
  7. MEDICINE IN ANTIDEPRESSANT CATEGORY [Concomitant]
     Indication: PAIN
     Dosage: AT NIGHT
  8. HUMIRA [Suspect]
     Indication: RHEUMATOID ARTHRITIS
     Dates: start: 20111115

REACTIONS (10)
  - FEELING ABNORMAL [None]
  - DRUG INEFFECTIVE [None]
  - INJECTION SITE HAEMATOMA [None]
  - INJECTION SITE HAEMORRHAGE [None]
  - CONTUSION [None]
  - ALOPECIA [None]
  - INJECTION SITE PAIN [None]
  - INCREASED TENDENCY TO BRUISE [None]
  - ARTHRALGIA [None]
  - ARTHRITIS [None]
